FAERS Safety Report 8539732-2 (Version None)
Quarter: 2012Q3

REPORT INFORMATION
  Report Type: 
  Country: None (occurrence: None)
  Receive Date: 20120726
  Receipt Date: 20111214
  Transmission Date: 20120928
  Serious: No
  Sender: FDA-Public Use
  Company Number: US-ASTRAZENECA-2009SE08572

PATIENT
  Age: 59 Year
  Sex: Female

DRUGS (2)
  1. SEROQUEL [Suspect]
     Indication: SLEEP DISORDER
     Route: 048
  2. SEROQUEL [Suspect]
     Route: 048

REACTIONS (8)
  - INSOMNIA [None]
  - MALAISE [None]
  - FEELING ABNORMAL [None]
  - LETHARGY [None]
  - DIZZINESS [None]
  - DRUG PRESCRIBING ERROR [None]
  - FATIGUE [None]
  - DRUG DOSE OMISSION [None]
